FAERS Safety Report 7233469-8 (Version None)
Quarter: 2011Q1

REPORT INFORMATION
  Report Type: 
  Country: None (occurrence: None)
  Receive Date: 20110119
  Receipt Date: 20110110
  Transmission Date: 20110831
  Serious: Yes (Hospitalization)
  Sender: FDA-Public Use
  Company Number: US-ASTRAZENECA-2011SE01743

PATIENT
  Age: 64 Year
  Sex: Female

DRUGS (3)
  1. ZANTAC [Concomitant]
  2. NEXIUM [Suspect]
     Route: 048
  3. PRILOSEC [Concomitant]

REACTIONS (5)
  - MIGRAINE [None]
  - GASTRITIS [None]
  - HYSTERECTOMY [None]
  - VOMITING [None]
  - NAUSEA [None]
